FAERS Safety Report 8528516-7 (Version None)
Quarter: 2012Q3

REPORT INFORMATION
  Report Type: 
  Country: None (occurrence: None)
  Receive Date: 20120723
  Receipt Date: 20120711
  Transmission Date: 20120928
  Serious: Yes (Other)
  Sender: FDA-Public Use
  Company Number: FR-AMGEN-FRASP2012044639

PATIENT
  Age: 53 Year
  Sex: Male

DRUGS (1)
  1. ENBREL [Suspect]
     Indication: PRODUCT USED FOR UNKNOWN INDICATION
     Dosage: UNK
     Dates: start: 20100101

REACTIONS (4)
  - HYPERTENSION [None]
  - TOOTH ABSCESS [None]
  - VERTIGO [None]
  - MALAISE [None]
